FAERS Safety Report 15173376 (Version 1)
Quarter: 2018Q3

REPORT INFORMATION
  Report Type: Spontaneous
  Country: JP (occurrence: JP)
  Receive Date: 20180720
  Receipt Date: 20180720
  Transmission Date: 20181010
  Serious: Yes (Hospitalization)
  Sender: FDA-Public Use
  Company Number: JP-BAYER-2018-131938

PATIENT
  Age: 81 Year
  Sex: Male

DRUGS (1)
  1. XOFIGO [Suspect]
     Active Substance: RADIUM RA-223 DICHLORIDE
     Dosage: ONCE, 55 KBQ / KG
     Route: 042
     Dates: start: 20180614

REACTIONS (2)
  - Cervical vertebral fracture [Unknown]
  - Fall [None]

NARRATIVE: CASE EVENT DATE: 20180628
